FAERS Safety Report 17112493 (Version 1)
Quarter: 2019Q4

REPORT INFORMATION
  Report Type: Spontaneous
  Country: CA (occurrence: CA)
  Receive Date: 20191204
  Receipt Date: 20191204
  Transmission Date: 20200122
  Serious: Yes (Other)
  Sender: FDA-Public Use
  Company Number: CA-B.BRAUN MEDICAL INC.-2077464

PATIENT
  Sex: Female

DRUGS (1)
  1. SODIUM CHLORIDE FOR IRRIGATION [Suspect]
     Active Substance: SODIUM CHLORIDE
     Route: 033

REACTIONS (3)
  - Device malfunction [None]
  - Wrong technique in product usage process [None]
  - Product label confusion [None]
